FAERS Safety Report 5061902-9 (Version None)
Quarter: 2006Q3

REPORT INFORMATION
  Report Type: 
  Country: None (occurrence: None)
  Receive Date: 20060703
  Receipt Date: 20060316
  Transmission Date: 20061208
  Serious: No
  Sender: FDA-Public Use
  Company Number: 2006PV010339

PATIENT
  Age: 78 Year
  Sex: Female
  Weight: 90.7194 kg

DRUGS (6)
  1. SYMLIN [Suspect]
     Indication: DIABETES MELLITUS NON-INSULIN-DEPENDENT
     Dosage: 30 MCG;BID;SC
     Route: 058
     Dates: start: 20060305
  2. LANTUS [Suspect]
     Indication: DRUG USE FOR UNKNOWN INDICATION
     Dosage: 70 UNITS;HS
     Dates: start: 20050101, end: 20060315
  3. LANTUS [Concomitant]
  4. TYLENOL W/ CODEINE [Concomitant]
  5. PRILOSEC [Concomitant]
  6. OXYGEN [Concomitant]

REACTIONS (5)
  - ABDOMINAL PAIN UPPER [None]
  - BLOOD GLUCOSE DECREASED [None]
  - DIZZINESS [None]
  - FALL [None]
  - NAUSEA [None]
